FAERS Safety Report 5400499-8 (Version None)
Quarter: 2007Q3

REPORT INFORMATION
  Report Type: 
  Country: None (occurrence: None)
  Receive Date: 20070725
  Receipt Date: 20070709
  Transmission Date: 20080115
  Serious: Yes (Hospitalization)
  Sender: FDA-Public Use
  Company Number: 8025257

PATIENT
  Age: 14 Year
  Sex: Female
  Weight: 70.5 kg

DRUGS (2)
  1. EQUASYM [Suspect]
     Indication: ATTENTION DEFICIT/HYPERACTIVITY DISORDER
     Dosage: 30 MG 1/D PO
     Route: 048
     Dates: start: 20070410
  2. RITALIN [Concomitant]

REACTIONS (1)
  - SYNCOPE [None]
